FAERS Safety Report 10619637 (Version 1)
Quarter: 2014Q4

REPORT INFORMATION
  Report Type: Spontaneous
  Country: DE (occurrence: None)
  Receive Date: 20141128
  Receipt Date: 20141128
  Transmission Date: 20150529
  Serious: Yes (Hospitalization, Congenital Anomaly)
  Sender: FDA-Public Use
  Company Number: DE-2014VAL000590

PATIENT
  Age: 1 Day
  Sex: Female
  Weight: 2.8 kg

DRUGS (6)
  1. LAMICTAL [Suspect]
     Active Substance: LAMOTRIGINE
     Indication: EPILEPSY
     Dosage: 1050 MG, QD TRANSPLACENTAL
     Route: 064
     Dates: start: 20131019, end: 20140714
  2. HEPATITIS VACCINES [Concomitant]
     Active Substance: UNSPECIFIED INGREDIENT
  3. FOLSAEURE(FOLIC ACID) [Concomitant]
  4. METOPROLOL TARTRATE. [Suspect]
     Active Substance: METOPROLOL TARTRATE
     Indication: HYPERTENSION
     Dosage: 50 MG, 1-0-0, TRANSPLACENTAL
     Route: 064
     Dates: start: 20131118, end: 20140209
  5. RAMIPRIL(RAMIPRIL) [Concomitant]
  6. METHYLDOPA(METHYLDOPA) [Concomitant]

REACTIONS (6)
  - Atrial septal defect [None]
  - Maternal drugs affecting foetus [None]
  - Ventricular septal defect [None]
  - Patent ductus arteriosus [None]
  - Caesarean section [None]
  - Congenital choroid plexus cyst [None]

NARRATIVE: CASE EVENT DATE: 20140711
